FAERS Safety Report 8002512-0 (Version None)
Quarter: 2011Q4

REPORT INFORMATION
  Report Type: 
  Country: None (occurrence: None)
  Receive Date: 20111220
  Receipt Date: 20111208
  Transmission Date: 20120403
  Serious: Yes (Other)
  Sender: FDA-Public Use
  Company Number: AUR-APL-2011-06158

PATIENT
  Age: 84 Year
  Sex: Male
  Weight: 63.49 kg

DRUGS (2)
  1. LISINOPRIL [Suspect]
     Indication: HYPERTENSION
     Dosage: (0.5 MG, 1 D)
  2. LIPITOR [Suspect]
     Indication: BLOOD CHOLESTEROL INCREASED
     Dosage: (80 MG, 1 D), ORAL
     Route: 048
     Dates: start: 19960101

REACTIONS (4)
  - SUDDEN HEARING LOSS [None]
  - DEAFNESS TRANSITORY [None]
  - WRONG TECHNIQUE IN DRUG USAGE PROCESS [None]
  - HYPOTENSION [None]
